FAERS Safety Report 17014345 (Version 2)
Quarter: 2019Q4

REPORT INFORMATION
  Report Type: Spontaneous
  Country: US (occurrence: US)
  Receive Date: 20191111
  Receipt Date: 20191118
  Transmission Date: 20200122
  Serious: Yes (Other)
  Sender: FDA-Public Use
  Company Number: US-BEH-2019108948

PATIENT
  Age: 29 Year
  Sex: Female

DRUGS (2)
  1. HUMATE-P [Suspect]
     Active Substance: HUMAN COAGULATION FACTOR VIII/VON WILLEBRAND FACTOR COMPLEX
     Indication: VON WILLEBRAND^S DISEASE
     Dosage: 7564 INTERNATIONAL UNIT, BID (EVERY 12 HRS)
     Route: 042
     Dates: start: 20170713
  2. HUMATE-P [Suspect]
     Active Substance: HUMAN COAGULATION FACTOR VIII/VON WILLEBRAND FACTOR COMPLEX
     Indication: VON WILLEBRAND^S DISEASE
     Dosage: 7564 INTERNATIONAL UNIT, BID (EVERY 12 HRS)
     Route: 042
     Dates: start: 20170713

REACTIONS (2)
  - Post procedural haemorrhage [Unknown]
  - Vaginal haemorrhage [Unknown]

NARRATIVE: CASE EVENT DATE: 201910
